FAERS Safety Report 7468440-4 (Version None)
Quarter: 2011Q2

REPORT INFORMATION
  Report Type: 
  Country: None (occurrence: None)
  Receive Date: 20110509
  Receipt Date: 20110503
  Transmission Date: 20111010
  Serious: Yes (Other)
  Sender: FDA-Public Use
  Company Number: US-PFIZER INC-2011077465

PATIENT
  Sex: Male
  Weight: 70.748 kg

DRUGS (14)
  1. MUCINEX [Concomitant]
     Dosage: DM MEX STRENGTH 60-1200 MG EXTE. REL. 12 HR, Q12H, AS NEEDED
     Dates: start: 20110424
  2. LYRICA [Suspect]
     Indication: SURGERY
  3. WARFARIN [Concomitant]
     Dosage: 4 MG, 1X/DAY
     Dates: start: 20100216
  4. VITAMIN B COMPLEX CAP [Concomitant]
     Dosage: 1 DF, 1X/DAY
     Route: 048
     Dates: start: 20090812
  5. METOPROLOL SUCCINATE [Concomitant]
     Dosage: 25 MG, 1X/DAY
     Route: 048
     Dates: start: 20110216
  6. OXYCODONE HCL AND ACETAMINOPHEN [Concomitant]
     Dosage: 5-325 MG/5 ML SOLN., Q6HR AS NEEDED
     Dates: start: 20090812
  7. PRAVASTATIN SODIUM [Concomitant]
     Dosage: 40 MG, 1X/DAY
     Route: 048
     Dates: start: 20100817
  8. GABAPENTIN [Concomitant]
     Dosage: 300 MG, 2X/DAY
     Route: 048
     Dates: start: 20110420
  9. LYRICA [Suspect]
     Indication: BACK INJURY
     Dosage: 100 MG, 2X/DAY
     Dates: end: 20110419
  10. CALCIUM WITH VITAMIN D [Concomitant]
     Dosage: 1 DF, 2X/DAY
     Route: 048
     Dates: start: 20110216
  11. POTASSIUM CITRATE [Concomitant]
     Dosage: 10 MEQ (1080 MG), 1X/DAY, EXT. RELEASE
     Route: 048
     Dates: start: 20090812
  12. VITAMIN C [Concomitant]
     Dosage: 500 MG, 1X/DAY
     Route: 048
     Dates: start: 20090812
  13. CELEBREX [Concomitant]
     Dosage: 20 MG, 1X/DAY
     Route: 048
     Dates: start: 20110404
  14. MULTIPLE VITAMINS [Concomitant]
     Dosage: 1 DF, 1X/DAY
     Route: 048
     Dates: start: 20090812

REACTIONS (4)
  - DYSURIA [None]
  - OEDEMA PERIPHERAL [None]
  - CEREBROVASCULAR ACCIDENT [None]
  - PAIN IN EXTREMITY [None]
